FAERS Safety Report 9452894 (Version 1)
Quarter: 2013Q3

REPORT INFORMATION
  Report Type: Spontaneous
  Country: FR (occurrence: FR)
  Receive Date: 20130812
  Receipt Date: 20130812
  Transmission Date: 20140515
  Serious: Yes (Hospitalization, Other)
  Sender: FDA-Public Use
  Company Number: FR-PFIZER INC-2013229766

PATIENT
  Age: 72 Year
  Sex: Male

DRUGS (9)
  1. FLUOROURACILE PFIZER [Suspect]
     Dosage: 5660 MG, 1/X CYCLE ( CUMULATED DOSE 22640 MG)
     Route: 042
     Dates: end: 20130325
  2. ELOXATINE [Suspect]
     Dosage: 200 MG, 1X/1 CYCLE (CUMULATED DOSE 800 MG)
     Route: 041
     Dates: end: 20130325
  3. FOLINIC ACID [Concomitant]
  4. OMEXEL [Concomitant]
     Dosage: 0.4 MG, 2X/DAY
  5. SINGULAIR [Concomitant]
     Dosage: 10 MG DAILY
  6. FLIXOTIDE [Concomitant]
     Dosage: 1 DF, 2X/DAY
  7. BRICANYL [Concomitant]
     Dosage: 1 DF, 2X/DAY
  8. PECFENT [Concomitant]
     Dosage: 1 TO 4 TIMES DAILY
  9. SKENAN [Concomitant]
     Dosage: 1 DF, 2X/DAY

REACTIONS (2)
  - Encephalopathy [Recovered/Resolved]
  - Tonic convulsion [Recovered/Resolved]
